FAERS Safety Report 14350183 (Version 1)
Quarter: 2018Q1

REPORT INFORMATION
  Report Type: Spontaneous
  Country: US (occurrence: US)
  Receive Date: 20180103
  Receipt Date: 20180103
  Transmission Date: 20180509
  Serious: Yes (Hospitalization)
  Sender: FDA-Public Use
  Company Number: None

PATIENT
  Age: 64 Year
  Sex: Male

DRUGS (2)
  1. LEVAQUIN [Suspect]
     Active Substance: LEVOFLOXACIN
     Indication: PROPHYLAXIS
  2. LEVAQUIN [Suspect]
     Active Substance: LEVOFLOXACIN
     Indication: POSTOPERATIVE CARE

REACTIONS (1)
  - Paralysis [None]

NARRATIVE: CASE EVENT DATE: 20171202
